FAERS Safety Report 7770108-1 (Version None)
Quarter: 2011Q3

REPORT INFORMATION
  Report Type: 
  Country: None (occurrence: None)
  Receive Date: 20110922
  Receipt Date: 20110916
  Transmission Date: 20111222
  Serious: Yes (Other)
  Sender: FDA-Public Use
  Company Number: CO-B.I. PHARMACEUTICALS,INC./RIDGEFIELD-2011-RA-00290RA

PATIENT

DRUGS (1)
  1. PRADAXA [Suspect]
     Dosage: 110 MG

REACTIONS (1)
  - CEREBROVASCULAR ACCIDENT [None]
